FAERS Safety Report 8970255 (Version 1)
Quarter: 2012Q4

REPORT INFORMATION
  Report Type: 
  Country: US (occurrence: US)
  Receive Date: 20121218
  Receipt Date: 20121218
  Transmission Date: 20130627
  Serious: No
  Sender: FDA-Public Use
  Company Number: US-BRISTOL-MYERS SQUIBB COMPANY-16491839

PATIENT
  Age: 47 Year
  Sex: Female
  Weight: 107 kg

DRUGS (4)
  1. ABILIFY [Suspect]
     Indication: DEPRESSION
     Dosage: Duration: for years
     Dates: end: 2011
  2. ABILIFY [Suspect]
     Indication: BIPOLAR DISORDER
     Dosage: Duration: for years
     Dates: end: 2011
  3. ABILIFY [Suspect]
     Indication: BORDERLINE PERSONALITY DISORDER
     Dosage: Duration: for years
     Dates: end: 2011
  4. ABILIFY [Suspect]
     Indication: SUICIDAL IDEATION
     Dosage: Duration: for years
     Dates: end: 2011

REACTIONS (1)
  - Tremor [Recovered/Resolved]
